FAERS Safety Report 8757871 (Version 1)
Quarter: 2012Q4

REPORT INFORMATION
  Report Type: 
  Country: US (occurrence: US)
  Receive Date: 20120828
  Receipt Date: 20120828
  Transmission Date: 20130627
  Serious: Yes (Other)
  Sender: FDA-Public Use
  Company Number: US-ARROW-2012-14795

PATIENT
  Age: 35 Year
  Sex: Female

DRUGS (2)
  1. PREDNISONE (WATSON LABORATORIES) [Suspect]
     Indication: PEMPHIGUS
     Dosage: 5 mg, daily
     Route: 048
  2. METHOTREXATE [Suspect]
     Indication: PEMPHIGUS
     Dosage: UNK
     Route: 065

REACTIONS (3)
  - Herpes simplex [Recovered/Resolved]
  - Plasmacytoma [Recovered/Resolved]
  - Adrenal insufficiency [Recovered/Resolved]
